FAERS Safety Report 9324836 (Version 3)
Quarter: 2013Q2

REPORT INFORMATION
  Report Type: Spontaneous
  Country: US (occurrence: US)
  Receive Date: 20130603
  Receipt Date: 20130628
  Transmission Date: 20140414
  Serious: Yes (Hospitalization)
  Sender: FDA-Public Use
  Company Number: US-PURDUE-USA-2013-0101573

PATIENT
  Age: 51 Year
  Sex: Male
  Weight: 54.42 kg

DRUGS (5)
  1. OXYCONTIN (NDA 22-272) [Suspect]
     Indication: BACK PAIN
     Dosage: 80 MG, Q12H
     Route: 048
     Dates: start: 20110503, end: 20130403
  2. OXYCODONE HYDROCHLORIDE (SIMILAR TO NDA 22-272) [Suspect]
     Indication: BACK PAIN
     Dosage: 30 MG, UNK
     Route: 048
     Dates: start: 20110503, end: 20130403
  3. OXYCODONE HYDROCHLORIDE (SIMILAR TO NDA 22-272) [Suspect]
     Dosage: 120 MG, UNK
     Route: 048
     Dates: start: 20130403
  4. ROXICODONE [Suspect]
     Indication: PRODUCT USED FOR UNKNOWN INDICATION
     Route: 065
  5. KLONOPIN [Concomitant]
     Indication: ANXIETY
     Dosage: 1 MG, TID
     Dates: start: 20080408

REACTIONS (11)
  - Road traffic accident [Unknown]
  - Subdural haemorrhage [Recovering/Resolving]
  - Rib fracture [Recovering/Resolving]
  - Sternal fracture [Recovering/Resolving]
  - Pneumomediastinum [Recovering/Resolving]
  - Splenic rupture [Recovering/Resolving]
  - Traumatic liver injury [Recovering/Resolving]
  - Foot fracture [Recovering/Resolving]
  - Spinal fracture [Recovering/Resolving]
  - Weight increased [Unknown]
  - Constipation [Unknown]
